FAERS Safety Report 26107578 (Version 1)
Quarter: 2025Q4

REPORT INFORMATION
  Report Type: Spontaneous
  Country: US (occurrence: None)
  Receive Date: 20251126
  Receipt Date: 20251126
  Transmission Date: 20260118
  Serious: No
  Sender: FDA-CTU
  Company Number: None

PATIENT
  Age: 56 Year
  Sex: Female

DRUGS (2)
  1. AUSTEDO XR [Suspect]
     Active Substance: DEUTETRABENAZINE
     Dosage: FREQUENCY : DAILY;?
     Route: 048
  2. FINGOLIMOD [Suspect]
     Active Substance: FINGOLIMOD

REACTIONS (1)
  - Immune thrombocytopenia [None]
